FAERS Safety Report 6069215-3 (Version None)
Quarter: 2009Q1

REPORT INFORMATION
  Report Type: 
  Country: None (occurrence: None)
  Receive Date: 20090121
  Receipt Date: 20080104
  Transmission Date: 20090719
  Serious: Yes (Hospitalization, Other)
  Sender: FDA-Public Use
  Company Number: HQWYE738403AUG04

PATIENT
  Age: 66 Year
  Sex: Female
  Weight: 69.01 kg

DRUGS (3)
  1. PREMPRO [Suspect]
  2. PREMARIN [Suspect]
  3. PROVERA [Suspect]

REACTIONS (4)
  - BREAST CANCER [None]
  - MEMORY IMPAIRMENT [None]
  - NONSPECIFIC REACTION [None]
  - WEIGHT INCREASED [None]
